FAERS Safety Report 22003532 (Version 1)
Quarter: 2023Q1

REPORT INFORMATION
  Report Type: Other
  Country: GB (occurrence: GB)
  Receive Date: 20230217
  Receipt Date: 20230217
  Transmission Date: 20230417
  Serious: Yes (Life-Threatening, Hospitalization)
  Sender: FDA-Public Use
  Company Number: None

PATIENT
  Age: 59 Year
  Sex: Male

DRUGS (1)
  1. NAPROXEN [Suspect]
     Active Substance: NAPROXEN
     Indication: Abdominal pain
     Dosage: 500 MILLIGRAM, BID (500MG BD; ;CAPSULE)
     Route: 065
     Dates: start: 20230201, end: 20230206

REACTIONS (3)
  - Medication error [Unknown]
  - Perforated ulcer [Not Recovered/Not Resolved]
  - Off label use [Unknown]
